FAERS Safety Report 15111025 (Version 1)
Quarter: 2018Q3

REPORT INFORMATION
  Report Type: Spontaneous
  Country: FR (occurrence: FR)
  Receive Date: 20180705
  Receipt Date: 20180705
  Transmission Date: 20181010
  Serious: Yes (Other)
  Sender: FDA-Public Use
  Company Number: FR-BAYER-2018-121024

PATIENT
  Sex: Female
  Weight: 64 kg

DRUGS (1)
  1. MIRENA [Suspect]
     Active Substance: LEVONORGESTREL
     Indication: CONTRACEPTION
     Dosage: 20 MCG/24HR, CONT
     Route: 015
     Dates: start: 20091117, end: 20161022

REACTIONS (13)
  - Facial paralysis [Recovering/Resolving]
  - Insomnia [Recovering/Resolving]
  - Depression [Recovering/Resolving]
  - Headache [Recovering/Resolving]
  - Dry eye [Recovering/Resolving]
  - Alopecia [Recovering/Resolving]
  - Stress [Recovering/Resolving]
  - Tachycardia [Recovering/Resolving]
  - Nervousness [Recovering/Resolving]
  - Emotional disorder [Recovering/Resolving]
  - Paraesthesia [Recovering/Resolving]
  - Fatigue [Recovering/Resolving]
  - Breast pain [Recovering/Resolving]

NARRATIVE: CASE EVENT DATE: 201001
